FAERS Safety Report 4988204-0 (Version None)
Quarter: 2006Q2

REPORT INFORMATION
  Report Type: 
  Country: None (occurrence: None)
  Receive Date: 20060425
  Receipt Date: 20060412
  Transmission Date: 20061013
  Serious: Yes (Other)
  Sender: FDA-Public Use
  Company Number: 2006050942

PATIENT
  Age: 86 Year
  Sex: Male

DRUGS (3)
  1. HALCION [Suspect]
     Indication: SEDATION
     Dosage: 0.25 MG (0.25 MG, 1 IN 1 D), ORAL
     Route: 048
  2. LORENIN (LORAZEPAM) [Suspect]
     Indication: ILL-DEFINED DISORDER
     Dosage: ORAL
     Route: 048
  3. VIAGRA [Concomitant]

REACTIONS (1)
  - DRUG INEFFECTIVE [None]
